FAERS Safety Report 7667801-8 (Version None)
Quarter: 2011Q3

REPORT INFORMATION
  Report Type: 
  Country: None (occurrence: None)
  Receive Date: 20110806
  Receipt Date: 20110411
  Transmission Date: 20111222
  Serious: No
  Sender: FDA-Public Use
  Company Number: US-ABBOTT-11P-163-0718141-00

PATIENT
  Sex: Female
  Weight: 70.37 kg

DRUGS (5)
  1. NIASPAN [Suspect]
  2. ASPIRIN [Concomitant]
     Indication: PRODUCT USED FOR UNKNOWN INDICATION
  3. ESTROGENIC SUBSTANCE [Concomitant]
     Indication: PRODUCT USED FOR UNKNOWN INDICATION
  4. UNKNOWN MEDICATION [Concomitant]
     Indication: THYROID DISORDER
  5. NIASPAN [Suspect]
     Indication: BLOOD TRIGLYCERIDES INCREASED
     Dosage: AT BEDTIME
     Dates: start: 20110201

REACTIONS (6)
  - FEELING HOT [None]
  - PNEUMONIA [None]
  - PRURITUS GENERALISED [None]
  - FLUSHING [None]
  - SKIN BURNING SENSATION [None]
  - URTICARIA [None]
